FAERS Safety Report 7719262-8 (Version None)
Quarter: 2011Q3

REPORT INFORMATION
  Report Type: 
  Country: None (occurrence: None)
  Receive Date: 20110830
  Receipt Date: 20110819
  Transmission Date: 20111222
  Serious: Yes (Hospitalization)
  Sender: FDA-Public Use
  Company Number: JP-ASTRAZENECA-2011SE43372

PATIENT
  Age: 68 Year
  Sex: Female

DRUGS (16)
  1. LENDORMIN D [Concomitant]
  2. LANTUS [Concomitant]
  3. DIOVAN [Concomitant]
  4. MUCOSOLVAN [Concomitant]
  5. IMURAN [Concomitant]
  6. ZETIA [Concomitant]
  7. MEROPENEM [Suspect]
     Indication: PYELONEPHRITIS
     Route: 042
     Dates: start: 20110617, end: 20110630
  8. ASTOMIN [Concomitant]
  9. SENNOSIDE [Concomitant]
  10. ALENDRONATE SODIUM [Concomitant]
  11. WARFARIN SODIUM [Concomitant]
  12. NOVORAPID [Concomitant]
  13. PREDNISOLONE [Concomitant]
  14. BEZATOL SR [Concomitant]
  15. OMEPRAZOLE [Concomitant]
  16. LASIX [Concomitant]

REACTIONS (1)
  - FEBRILE NEUTROPENIA [None]
